FAERS Safety Report 5151272-X (Version None)
Quarter: 2006Q4

REPORT INFORMATION
  Report Type: 
  Country: None (occurrence: None)
  Receive Date: 20061113
  Receipt Date: 20061113
  Transmission Date: 20070319
  Serious: Yes (Other)
  Sender: FDA-Public Use
  Company Number: None

PATIENT
  Age: 32 Year
  Sex: Female

DRUGS (1)
  1. ROCEPHIN [Suspect]
     Indication: EXTERNAL EAR CELLULITIS
     Dosage: 1 GRAM IM
     Route: 012
     Dates: start: 20060825, end: 20060825

REACTIONS (2)
  - RASH [None]
  - WHEEZING [None]
